FAERS Safety Report 10510683 (Version 1)
Quarter: 2014Q3

REPORT INFORMATION
  Report Type: Spontaneous
  Country: US (occurrence: None)
  Receive Date: 20140915
  Receipt Date: 20140915
  Transmission Date: 20150326
  Serious: Yes (Other)
  Sender: FDA-Public Use
  Company Number: 2013-US-002546

PATIENT
  Age: 54 Year
  Sex: Female
  Weight: 68 kg

DRUGS (6)
  1. XYREM [Suspect]
     Active Substance: SODIUM OXYBATE
     Indication: CATAPLEXY
     Route: 048
     Dates: start: 201310
  2. ADDERALL [Concomitant]
     Active Substance: AMPHETAMINE ASPARTATE\AMPHETAMINE SULFATE\DEXTROAMPHETAMINE SACCHARATE\DEXTROAMPHETAMINE SULFATE
  3. BUSPAR [Suspect]
     Active Substance: BUSPIRONE HYDROCHLORIDE
     Indication: ANXIETY
  4. XYREM [Suspect]
     Active Substance: SODIUM OXYBATE
     Indication: NARCOLEPSY
     Route: 048
     Dates: start: 201310
  5. TOPAMAX [Concomitant]
     Active Substance: TOPIRAMATE
  6. VALTREX [Concomitant]
     Active Substance: VALACYCLOVIR HYDROCHLORIDE

REACTIONS (12)
  - Somnolence [None]
  - Chest pain [None]
  - Headache [None]
  - Condition aggravated [None]
  - Retching [None]
  - Anxiety [None]
  - Tremor [None]
  - Pain [None]
  - Depression [None]
  - Insomnia [None]
  - Epistaxis [None]
  - Muscle spasms [None]

NARRATIVE: CASE EVENT DATE: 2013
